FAERS Safety Report 14940485 (Version 1)
Quarter: 2018Q2

REPORT INFORMATION
  Report Type: Spontaneous
  Country: US (occurrence: US)
  Receive Date: 20180525
  Receipt Date: 20180525
  Transmission Date: 20180711
  Serious: Yes (Other)
  Sender: FDA-Public Use
  Company Number: US-PFIZER INC-2018212709

PATIENT
  Age: 82 Year
  Sex: Male
  Weight: 64 kg

DRUGS (1)
  1. SUTENT [Suspect]
     Active Substance: SUNITINIB MALATE
     Indication: RENAL CANCER
     Dosage: 50 MG, CYCLIC (DAILY FOR 14 DAYS ON, OFF FOR 14 DAYS)
     Route: 048
     Dates: start: 201804

REACTIONS (8)
  - Asthenia [Not Recovered/Not Resolved]
  - Product use issue [Unknown]
  - Neoplasm progression [Unknown]
  - Insomnia [Unknown]
  - Back pain [Unknown]
  - Discomfort [Unknown]
  - Gait disturbance [Unknown]
  - Confusional state [Unknown]

NARRATIVE: CASE EVENT DATE: 2018
